FAERS Safety Report 21519433 (Version 1)
Quarter: 2022Q4

REPORT INFORMATION
  Report Type: Report from Study
  Country: DE (occurrence: DE)
  Receive Date: 20221028
  Receipt Date: 20221028
  Transmission Date: 20230113
  Serious: Yes (Hospitalization, Other)
  Sender: FDA-Public Use
  Company Number: DE-002147023-PHHY2016DE115324

PATIENT
  Age: 12 Year
  Sex: Female
  Weight: 46.2 kg

DRUGS (50)
  1. METHOTREXATE [Suspect]
     Active Substance: METHOTREXATE
     Indication: Acute lymphocytic leukaemia
     Dosage: 6900 MILLIGRAM DAILY; DURATION 3357 DAYS
     Dates: start: 20051120, end: 20150128
  2. METHOTREXATE [Suspect]
     Active Substance: METHOTREXATE
     Dosage: 7300 MILLIGRAM DAILY; DURATION 2 DAYS
     Dates: start: 20150106, end: 20150107
  3. METHOTREXATE [Suspect]
     Active Substance: METHOTREXATE
     Dosage: 10 MG, QW, DURATION 29 DAYS
     Dates: start: 20151112, end: 20151210
  4. ETOPOSIDE [Suspect]
     Active Substance: ETOPOSIDE
     Indication: Acute lymphocytic leukaemia
     Dosage: 140 MG, DURATION 3 DAYS
     Route: 065
     Dates: start: 20150219, end: 20150221
  5. VINCRISTINE [Suspect]
     Active Substance: VINCRISTINE
     Indication: Acute lymphocytic leukaemia
     Dosage: 1.9 MG, DURATION 1 DAY
     Route: 065
     Dates: start: 20150821, end: 20150821
  6. VINCRISTINE [Suspect]
     Active Substance: VINCRISTINE
     Dosage: 1.9 MG, DURATION 1 DAY
     Dates: start: 20150904, end: 20150904
  7. VINCRISTINE [Suspect]
     Active Substance: VINCRISTINE
     Dosage: 1.9 MG, DURATION 1 DAY
     Dates: start: 20150814, end: 20150814
  8. VINCRISTINE [Suspect]
     Active Substance: VINCRISTINE
     Dosage: 1.9 MG, DURATION 1 DAY
     Dates: start: 20150828, end: 20150828
  9. VINCRISTINE [Suspect]
     Active Substance: VINCRISTINE
     Dosage: 2 MG, DURATION 1 DAY
     Dates: start: 20150430, end: 20150430
  10. VINCRISTINE [Suspect]
     Active Substance: VINCRISTINE
     Dosage: 2 MG, DURATION 1 DAY
     Dates: start: 20150409, end: 20150409
  11. VINCRISTINE [Suspect]
     Active Substance: VINCRISTINE
     Dosage: 2 MG, DURATION 1 DAY
     Dates: start: 20150416, end: 20150416
  12. VINCRISTINE [Suspect]
     Active Substance: VINCRISTINE
     Dosage: 2 MG, DURATION 1 DAY
     Dates: start: 20150423, end: 20150423
  13. MERCAPTOPURINE [Suspect]
     Active Substance: MERCAPTOPURINE
     Indication: Acute lymphocytic leukaemia
     Dosage: 25 MILLIGRAM DAILY; 25 MG, QD, DURATION 29 DAYS
     Dates: start: 20151112, end: 20151210
  14. PEG/L-ASPARAGINASE [Suspect]
     Active Substance: PEGASPARGASE
     Indication: Acute lymphocytic leukaemia
     Dosage: 1400 IU, DURATION 1 DAYS
     Dates: start: 20150222, end: 20150222
  15. PEG/L-ASPARAGINASE [Suspect]
     Active Substance: PEGASPARGASE
     Dosage: 1380 IU, DURATION 1 DAYS
     Dates: start: 20150409, end: 20150409
  16. PEG/L-ASPARAGINASE [Suspect]
     Active Substance: PEGASPARGASE
     Dosage: 1380 IU, DURATION 1 DAYS
     Dates: start: 20150202, end: 20150202
  17. PEG/L-ASPARAGINASE [Suspect]
     Active Substance: PEGASPARGASE
     Dosage: 1270 IU, DURATION 1 DAYS
     Dates: start: 20150814, end: 20150814
  18. DAUNORUBICIN [Suspect]
     Active Substance: DAUNORUBICIN
     Indication: Acute lymphocytic leukaemia
     Dosage: 32 MG, DURATION 1 DAYS
     Dates: start: 20150821, end: 20150821
  19. DAUNORUBICIN [Suspect]
     Active Substance: DAUNORUBICIN
     Dosage: 35 MG, DURATION 1 DAYS
     Dates: start: 20150423, end: 20150423
  20. DAUNORUBICIN [Suspect]
     Active Substance: DAUNORUBICIN
     Dosage: 32 MG, DURATION 1 DAYS
     Dates: start: 20150828, end: 20150828
  21. DAUNORUBICIN [Suspect]
     Active Substance: DAUNORUBICIN
     Dosage: 32 MG, DURATION 1 DAYS
     Dates: start: 20150814, end: 20150814
  22. DAUNORUBICIN [Suspect]
     Active Substance: DAUNORUBICIN
     Dosage: 35 MG, DURATION 1 DAYS
     Dates: start: 20150416, end: 20150416
  23. DAUNORUBICIN [Suspect]
     Active Substance: DAUNORUBICIN
     Dosage: 41 MILLIGRAM DAILY; 41 MG, DURATION 3 DAYS
     Dates: start: 20150130, end: 20150201
  24. DAUNORUBICIN [Suspect]
     Active Substance: DAUNORUBICIN
     Dosage: 35 MG, DURATION 1 DAYS
     Dates: start: 20150409, end: 20150409
  25. DAUNORUBICIN [Suspect]
     Active Substance: DAUNORUBICIN
     Dosage: 35 MG, DURATION 1 DAYS
     Dates: start: 20150430, end: 20150430
  26. DAUNORUBICIN [Suspect]
     Active Substance: DAUNORUBICIN
     Dosage: 32 MG, DURATION 1 DAYS
     Dates: start: 20150904, end: 20150904
  27. CYCLOPHOSPHAMIDE [Suspect]
     Active Substance: CYCLOPHOSPHAMIDE
     Indication: Acute lymphocytic leukaemia
     Dosage: 1390 MILLIGRAM DAILY; 1390 MG, QD, DURATION 1 DAY
     Dates: start: 20150518, end: 20150518
  28. CYCLOPHOSPHAMIDE [Suspect]
     Active Substance: CYCLOPHOSPHAMIDE
     Dosage: 1490 MG, QD, DURATION 1 DAY
     Dates: start: 20141206, end: 20141206
  29. CYCLOPHOSPHAMIDE [Suspect]
     Active Substance: CYCLOPHOSPHAMIDE
     Dosage: 1260 MILLIGRAM DAILY; 1260 MG, QD, DURATION 1 DAY
     Dates: start: 20150922, end: 20150922
  30. CYCLOPHOSPHAMIDE [Suspect]
     Active Substance: CYCLOPHOSPHAMIDE
     Dosage: 292 MG, 5 X, DURATION 3 DAYS
     Dates: start: 20150107, end: 20150109
  31. CYCLOPHOSPHAMIDE [Suspect]
     Active Substance: CYCLOPHOSPHAMIDE
     Dosage: 1490 MILLIGRAM DAILY; 1490 MG, QD, DURATION 1 DAY
     Dates: start: 20141107, end: 20141107
  32. ESCHERICHIA COLI [Suspect]
     Active Substance: ESCHERICHIA COLI
     Indication: Acute lymphocytic leukaemia
     Dosage: 36500 IU (INTERNATIONAL UNIT) DAILY; 36500 IU, QD, DURATION 1 DAY
     Dates: start: 20150111, end: 20150111
  33. CYTARABINE [Suspect]
     Active Substance: CYTARABINE
     Indication: Acute lymphocytic leukaemia
     Dosage: 2X 2910, DURATION 1DAY
     Dates: start: 20150110, end: 20150110
  34. CYTARABINE [Suspect]
     Active Substance: CYTARABINE
     Dosage: 112 MILLIGRAM DAILY; 112 MG, QD,  DURATION 4 DAY
     Dates: start: 20141109, end: 20141112
  35. CYTARABINE [Suspect]
     Active Substance: CYTARABINE
     Dosage: 112 MILLIGRAM DAILY; 112 MG, QD,  DURATION 4 DAY
     Dates: start: 20141201, end: 20141204
  36. CYTARABINE [Suspect]
     Active Substance: CYTARABINE
     Dosage: 1280 MG, 4X,  DURATION 3 DAY
     Dates: start: 20150217, end: 20150219
  37. CYTARABINE [Suspect]
     Active Substance: CYTARABINE
     Dosage: 104 MILLIGRAM DAILY; 104 MG, QD,  DURATION 4 DAY
     Dates: start: 20150520, end: 20150523
  38. CYTARABINE [Suspect]
     Active Substance: CYTARABINE
     Dosage: 104 MILLIGRAM DAILY; 104 MG, QD,  DURATION 4 DAY
     Dates: start: 20151005, end: 20151008
  39. CYTARABINE [Suspect]
     Active Substance: CYTARABINE
     Dosage: 112 MILLIGRAM DAILY; 112 MG, QD,  DURATION 4 DAY
     Dates: start: 20141116, end: 20141119
  40. CYTARABINE [Suspect]
     Active Substance: CYTARABINE
     Dosage: 112 MILLIGRAM DAILY; 112 MG, QD,  DURATION 4 DAY
     Dates: start: 20141124, end: 20141127
  41. CYTARABINE [Suspect]
     Active Substance: CYTARABINE
     Dosage: 104 MILLIGRAM DAILY; 104 MG, QD,  DURATION 4 DAY
     Dates: start: 20150928, end: 20151001
  42. CYTARABINE [Suspect]
     Active Substance: CYTARABINE
     Dosage: 104 MILLIGRAM DAILY; 104 MG, QD,  DURATION 4 DAY
     Dates: start: 20150527, end: 20150530
  43. IFOSFAMIDE [Suspect]
     Active Substance: IFOSFAMIDE
     Indication: Acute lymphocytic leukaemia
     Dosage: 1100 MG, 5 X, DURATION 3 DAYS
     Dates: start: 20150128, end: 20150130
  44. GLIVEC [Suspect]
     Active Substance: IMATINIB MESYLATE
     Indication: Acute lymphocytic leukaemia
     Dosage: 350 MILLIGRAM DAILY; 350 MG, QD, DURATION 7 DAYS
     Dates: start: 20141229, end: 20150104
  45. GLIVEC [Suspect]
     Active Substance: IMATINIB MESYLATE
     Dosage: 400 MILLIGRAM DAILY; 400 MG, QD DURATION 32 DAYS
     Dates: start: 20151109, end: 20151210
  46. GLIVEC [Suspect]
     Active Substance: IMATINIB MESYLATE
     Dosage: 400 MILLIGRAM DAILY; 400 MG, QD, DURATION 82 DAYS
     Dates: start: 20150807, end: 20151027
  47. GLIVEC [Suspect]
     Active Substance: IMATINIB MESYLATE
     Dosage: 300 MILLIGRAM DAILY; 300 MG, QD, DURATION 83 DAYS
     Dates: start: 20141007, end: 20141228
  48. GLIVEC [Suspect]
     Active Substance: IMATINIB MESYLATE
     Dosage: 450 MILLIGRAM DAILY; 450 MG, QD, DURATION 127 DAYS
     Dates: start: 20150402, end: 20150806
  49. GLIVEC [Suspect]
     Active Substance: IMATINIB MESYLATE
     Dosage: 450 MILLIGRAM DAILY; 450 MG, QD, DURATION 66 DAYS
     Dates: start: 20150105, end: 20150311
  50. COTRIMOXAZOLE [Concomitant]
     Active Substance: SULFAMETHOXAZOLE\TRIMETHOPRIM
     Indication: Product used for unknown indication
     Dosage: 960 MG, THREE TIMES WEEK
     Dates: start: 20140923

REACTIONS (12)
  - Neutropenia [Recovered/Resolved]
  - Neutropenia [Recovered/Resolved]
  - Neutropenia [Recovered/Resolved]
  - Febrile neutropenia [Recovered/Resolved]
  - Febrile neutropenia [Recovered/Resolved]
  - Febrile neutropenia [Recovered/Resolved]
  - Febrile neutropenia [Recovered/Resolved]
  - Febrile neutropenia [Recovered/Resolved]
  - Neutropenia [Recovered/Resolved]
  - Febrile neutropenia [Recovered/Resolved]
  - Neutropenia [Recovered/Resolved]
  - Neutropenia [Recovered/Resolved]

NARRATIVE: CASE EVENT DATE: 20141212
